APPROVED DRUG PRODUCT: DUTASTERIDE AND TAMSULOSIN HYDROCHLORIDE
Active Ingredient: DUTASTERIDE; TAMSULOSIN HYDROCHLORIDE
Strength: 0.5MG;0.4MG
Dosage Form/Route: CAPSULE;ORAL
Application: A202509 | Product #001 | TE Code: AB
Applicant: PH HEALTH LTD
Approved: Feb 26, 2014 | RLD: No | RS: No | Type: RX